FAERS Safety Report 19192264 (Version 2)
Quarter: 2021Q2

REPORT INFORMATION
  Report Type: Spontaneous
  Country: PT (occurrence: PT)
  Receive Date: 20210429
  Receipt Date: 20210510
  Transmission Date: 20210717
  Serious: Yes (Hospitalization)
  Sender: FDA-Public Use
  Company Number: PT-JNJFOC-20210453701

PATIENT
  Age: 61 Year
  Weight: 70 kg

DRUGS (1)
  1. STELARA [Suspect]
     Active Substance: USTEKINUMAB
     Indication: CROHN^S DISEASE
     Route: 042
     Dates: start: 20210408, end: 20210408

REACTIONS (1)
  - Vasospasm [Recovered/Resolved]

NARRATIVE: CASE EVENT DATE: 20210408
